FAERS Safety Report 22989817 (Version 3)
Quarter: 2023Q4

REPORT INFORMATION
  Report Type: Spontaneous
  Country: US (occurrence: US)
  Receive Date: 20230927
  Receipt Date: 20231109
  Transmission Date: 20240110
  Serious: Yes (Other)
  Sender: FDA-Public Use
  Company Number: US-SA-2023SA290355

PATIENT
  Sex: Male
  Weight: 90.703 kg

DRUGS (25)
  1. FABRAZYME [Suspect]
     Active Substance: AGALSIDASE BETA
     Indication: Fabry^s disease
     Dosage: 90 MG, QOW
     Route: 042
  2. FABRAZYME [Suspect]
     Active Substance: AGALSIDASE BETA
     Dosage: UNK
     Route: 042
     Dates: start: 20230822
  3. FABRAZYME [Suspect]
     Active Substance: AGALSIDASE BETA
     Dosage: UNK
     Route: 042
     Dates: start: 20230905
  4. FABRAZYME [Suspect]
     Active Substance: AGALSIDASE BETA
     Dosage: UNK
     Route: 042
     Dates: start: 20231030
  5. VALCYTE [Concomitant]
     Active Substance: VALGANCICLOVIR HYDROCHLORIDE
  6. EPINEPHRINE [Concomitant]
     Active Substance: EPINEPHRINE
     Dosage: UNK
  7. RAMIPRIL [Concomitant]
     Active Substance: RAMIPRIL
     Dosage: UNK
  8. MYCOPHENOLATE MOFETIL [Concomitant]
     Active Substance: MYCOPHENOLATE MOFETIL
     Dosage: UNK
  9. PROGRAF [Concomitant]
     Active Substance: TACROLIMUS
     Dosage: UNK
  10. DOCUSATE SODIUM [Concomitant]
     Active Substance: DOCUSATE SODIUM
     Dosage: UNK
  11. STERILE WATER FOR INJECTION [Concomitant]
     Active Substance: WATER
     Dosage: UNK
  12. ACETAMINOPHEN [Concomitant]
     Active Substance: ACETAMINOPHEN
     Dosage: UNK
  13. PERCOCET [Concomitant]
     Active Substance: ACETAMINOPHEN\OXYCODONE HYDROCHLORIDE
     Dosage: UNK
  14. FAMOTIDINE [Concomitant]
     Active Substance: FAMOTIDINE
     Dosage: UNK
  15. MIRALAX [Concomitant]
     Active Substance: POLYETHYLENE GLYCOL 3350
     Dosage: UNK
  16. SODIUM CHLORIDE [Concomitant]
     Active Substance: SODIUM CHLORIDE
     Dosage: UNK
  17. LEVOTHYROXINE [Concomitant]
     Active Substance: LEVOTHYROXINE
     Dosage: UNK
  18. PREDNISONE [Concomitant]
     Active Substance: PREDNISONE
     Dosage: UNK
  19. ASPIRIN [Concomitant]
     Active Substance: ASPIRIN
     Dosage: UNK
  20. VITAMINS NOS [Concomitant]
     Active Substance: VITAMINS
     Dosage: UNK
  21. MODERNA COVID-19 VACCINE [Concomitant]
     Active Substance: ELASOMERAN
     Indication: Immunisation
     Dosage: UNK
  22. SODIUM CHLORIDE [Concomitant]
     Active Substance: SODIUM CHLORIDE
     Dosage: UNK
  23. PLAVIX [Concomitant]
     Active Substance: CLOPIDOGREL BISULFATE
     Dosage: UNK
  24. LIPITOR [Concomitant]
     Active Substance: ATORVASTATIN CALCIUM
     Dosage: UNK
  25. BACTRIM [Concomitant]
     Active Substance: SULFAMETHOXAZOLE\TRIMETHOPRIM

REACTIONS (6)
  - Syncope [Recovered/Resolved]
  - Hypoaesthesia oral [Unknown]
  - Heart rate decreased [Unknown]
  - Pallor [Unknown]
  - Dizziness [Unknown]
  - Headache [Unknown]

NARRATIVE: CASE EVENT DATE: 20230101
